FAERS Safety Report 5698759-9 (Version None)
Quarter: 2008Q2

REPORT INFORMATION
  Report Type: 
  Country: None (occurrence: None)
  Receive Date: 20080403
  Receipt Date: 20080318
  Transmission Date: 20081010
  Serious: Yes (Hospitalization)
  Sender: FDA-Public Use
  Company Number: ENT 2008-0042

PATIENT
  Sex: Female

DRUGS (1)
  1. COMTAN [Suspect]
     Indication: DRUG EFFECT DECREASED
     Dosage: 400 MG ORAL
     Route: 048
     Dates: start: 20070928

REACTIONS (2)
  - FALL [None]
  - GAIT DISTURBANCE [None]
